FAERS Safety Report 14036129 (Version 1)
Quarter: 2017Q4

REPORT INFORMATION
  Report Type: Spontaneous
  Country: US (occurrence: US)
  Receive Date: 20171003
  Receipt Date: 20171003
  Transmission Date: 20180321
  Serious: Yes (Hospitalization)
  Sender: FDA-Public Use
  Company Number: US-ROCHE-1857632

PATIENT
  Age: 55 Year
  Sex: Male

DRUGS (3)
  1. ZELBORAF [Suspect]
     Active Substance: VEMURAFENIB
     Indication: PRODUCT USED FOR UNKNOWN INDICATION
     Route: 065
     Dates: start: 20120425
  2. COBIMETINIB. [Suspect]
     Active Substance: COBIMETINIB
     Indication: PRODUCT USED FOR UNKNOWN INDICATION
     Route: 065
     Dates: start: 20120425
  3. ZELBORAF [Suspect]
     Active Substance: VEMURAFENIB
     Route: 065

REACTIONS (4)
  - Diarrhoea [Unknown]
  - Blood creatinine increased [Unknown]
  - Rash [Recovered/Resolved]
  - Photosensitivity reaction [Unknown]

NARRATIVE: CASE EVENT DATE: 20160506
